FAERS Safety Report 4337461-2 (Version None)
Quarter: 2004Q2

REPORT INFORMATION
  Report Type: 
  Country: None (occurrence: None)
  Receive Date: 20040408
  Receipt Date: 20040329
  Transmission Date: 20050107
  Serious: Yes (Other)
  Sender: FDA-Public Use
  Company Number: GB-JNJFOC-20040306573

PATIENT
  Sex: Male

DRUGS (2)
  1. REMICADE [Suspect]
     Indication: DRUG USE FOR UNKNOWN INDICATION
     Dosage: RECEIVED THREE INFUSIONS
     Dates: end: 20030901
  2. COP571 (ALL OTHER THERAPEUTIC PRODUCTS) [Suspect]
     Indication: CROHN'S DISEASE
     Dosage: 10 MG/KG, 1 IN 8 WEEK
     Dates: start: 20010904, end: 20021008

REACTIONS (4)
  - BRONCHITIS [None]
  - PULMONARY FIBROSIS [None]
  - PULMONARY MASS [None]
  - TUBERCULOSIS [None]
